FAERS Safety Report 14815812 (Version 3)
Quarter: 2018Q2

REPORT INFORMATION
  Report Type: Report from Study
  Country: CA (occurrence: CA)
  Receive Date: 20180426
  Receipt Date: 20180529
  Transmission Date: 20180711
  Serious: Yes (Other)
  Sender: FDA-Public Use
  Company Number: CA-GLAXOSMITHKLINE-CA2018GSK071603

PATIENT
  Sex: Female

DRUGS (3)
  1. MEPOLIZUMAB [Suspect]
     Active Substance: MEPOLIZUMAB
     Dosage: 100 MG, Z
     Route: 042
  2. VENTOLIN [Suspect]
     Active Substance: ALBUTEROL SULFATE
     Indication: ASTHMA
     Dosage: UNK
  3. MEPOLIZUMAB [Suspect]
     Active Substance: MEPOLIZUMAB
     Indication: ASTHMA
     Dosage: 100 MG, Z
     Route: 042
     Dates: start: 20180109

REACTIONS (9)
  - Chest discomfort [Unknown]
  - Lung infection [Unknown]
  - Nasopharyngitis [Unknown]
  - Eye irritation [Unknown]
  - Therapeutic response unexpected [Unknown]
  - Abnormal sensation in eye [Unknown]
  - Diarrhoea [Unknown]
  - Intestinal haemorrhage [Unknown]
  - Oropharyngeal pain [Unknown]
